FAERS Safety Report 16547044 (Version 2)
Quarter: 2019Q3

REPORT INFORMATION
  Report Type: Report from Study
  Country: GT (occurrence: GT)
  Receive Date: 20190709
  Receipt Date: 20190723
  Transmission Date: 20191004
  Serious: Yes (Other)
  Sender: FDA-Public Use
  Company Number: PHHY2019GT156844

PATIENT
  Age: 83 Year
  Sex: Female
  Weight: 66 kg

DRUGS (3)
  1. EXELON PATCH [Suspect]
     Active Substance: RIVASTIGMINE
     Indication: TREMOR
     Dosage: 9.5 MG, QD PATCH 10 (CM2)
     Route: 062
     Dates: end: 20190510
  2. CO-DIOVAN [Suspect]
     Active Substance: HYDROCHLOROTHIAZIDE\VALSARTAN
     Indication: HYPERTENSION
     Dosage: (HYDROCHLOROTHIAZIDE 12.5 MG, VALSARTAN 360 MG), QD
     Route: 065
  3. EXFORGE HCT [Suspect]
     Active Substance: AMLODIPINE BESYLATE\HYDROCHLOROTHIAZIDE\VALSARTAN
     Indication: HYPERTENSION
     Dosage: (AMLODIPINE 5 MG, HYDROCHLOROTHIAZIDE 12.5MG, VALSARTAN 160MG) UNK
     Route: 065
     Dates: end: 20190621

REACTIONS (4)
  - Thyroid disorder [Unknown]
  - Product use in unapproved indication [Recovered/Resolved]
  - Cardiac failure [Unknown]
  - Liver injury [Unknown]

NARRATIVE: CASE EVENT DATE: 20190322
